FAERS Safety Report 18419651 (Version 2)
Quarter: 2021Q1

REPORT INFORMATION
  Report Type: Spontaneous
  Country: US (occurrence: US)
  Receive Date: 20201023
  Receipt Date: 20210222
  Transmission Date: 20210419
  Serious: Yes (Other)
  Sender: FDA-Public Use
  Company Number: US-PFIZER INC-2020408936

PATIENT
  Age: 36 Year
  Sex: Female
  Weight: 64 kg

DRUGS (5)
  1. SUFENTANIL CITRATE. [Suspect]
     Active Substance: SUFENTANIL CITRATE
     Dosage: UNK (3?5 ML (15?25 UG)
  2. SUFENTANIL CITRATE. [Suspect]
     Active Substance: SUFENTANIL CITRATE
     Dosage: 135 UG (TOTAL SUFENTANIL DOSE OF 135 UG (9.6 UG/H))
  3. SUFENTANIL CITRATE. [Suspect]
     Active Substance: SUFENTANIL CITRATE
     Dosage: 10 UG/ML  (INCREASED TO 2 ML (10 UG)
  4. SUFENTANIL CITRATE. [Suspect]
     Active Substance: SUFENTANIL CITRATE
     Indication: POSTOPERATIVE ANALGESIA
     Dosage: 50  UG
     Route: 008
  5. SUFENTANIL CITRATE. [Suspect]
     Active Substance: SUFENTANIL CITRATE
     Dosage: 5 UG/ML (AT AN INITIAL DOSE OF 1 ML (5 UG)

REACTIONS (5)
  - Incorrect dose administered [Unknown]
  - Seizure [Unknown]
  - Apnoeic attack [Unknown]
  - Accidental overdose [Unknown]
  - Cyanosis [Unknown]
